FAERS Safety Report 8991005 (Version 2)
Quarter: 2013Q1

REPORT INFORMATION
  Report Type: Report from Study
  Country: JP (occurrence: JP)
  Receive Date: 20121231
  Receipt Date: 20130109
  Transmission Date: 20140127
  Serious: Yes (Death)
  Sender: FDA-Public Use
  Company Number: JP-ABBOTT-12P-087-1027933-00

PATIENT
  Age: 53 Year
  Sex: Male

DRUGS (2)
  1. LIPIDIL [Suspect]
     Indication: DYSLIPIDAEMIA
     Route: 048
     Dates: start: 20120919, end: 20121207
  2. PRASUGREL [Suspect]
     Indication: CEREBRAL INFARCTION
     Route: 048
     Dates: start: 20120502

REACTIONS (2)
  - Cardio-respiratory arrest [Fatal]
  - Pneumonia [Fatal]
